FAERS Safety Report 8531012-4 (Version None)
Quarter: 2012Q3

REPORT INFORMATION
  Report Type: 
  Country: None (occurrence: None)
  Receive Date: 20120723
  Receipt Date: 20120718
  Transmission Date: 20120928
  Serious: Yes (Death, Hospitalization, Other)
  Sender: FDA-Public Use
  Company Number: DE-ROCHE-1090333

PATIENT
  Sex: Female
  Weight: 105 kg

DRUGS (4)
  1. PEGASYS [Suspect]
     Indication: HEPATITIS C
     Route: 058
     Dates: start: 20120105
  2. COPEGUS [Suspect]
     Indication: HEPATITIS C
     Route: 048
     Dates: start: 20120105
  3. CITALOPRAM [Suspect]
     Indication: PRODUCT USED FOR UNKNOWN INDICATION
  4. BOCEPREVIR [Suspect]
     Indication: HEPATITIS C
     Route: 048
     Dates: start: 20120202

REACTIONS (2)
  - SEPSIS [None]
  - HEPATORENAL SYNDROME [None]
